FAERS Safety Report 19308077 (Version 1)
Quarter: 2021Q2

REPORT INFORMATION
  Report Type: Spontaneous
  Country: US (occurrence: US)
  Receive Date: 20210526
  Receipt Date: 20210526
  Transmission Date: 20210717
  Serious: No
  Sender: FDA-Public Use
  Company Number: US-GILEAD-2021-0530514

PATIENT
  Sex: Male

DRUGS (1)
  1. CAYSTON [Suspect]
     Active Substance: AZTREONAM
     Indication: BACTERIAL DISEASE CARRIER
     Dosage: UNK
     Route: 065

REACTIONS (2)
  - Sinus disorder [Not Recovered/Not Resolved]
  - Off label use [Recovered/Resolved]
